FAERS Safety Report 20028106 (Version 2)
Quarter: 2022Q1

REPORT INFORMATION
  Report Type: Spontaneous
  Country: US (occurrence: US)
  Receive Date: 20211103
  Receipt Date: 20220118
  Transmission Date: 20220424
  Serious: Yes (Hospitalization, Other)
  Sender: FDA-Public Use
  Company Number: US-ABBVIE-21K-163-4145350-00

PATIENT
  Sex: Female
  Weight: 90 kg

DRUGS (8)
  1. HUMIRA [Suspect]
     Active Substance: ADALIMUMAB
     Indication: Rheumatoid arthritis
     Route: 058
     Dates: start: 202102, end: 202109
  2. HUMIRA [Suspect]
     Active Substance: ADALIMUMAB
     Indication: Psoriatic arthropathy
     Route: 058
     Dates: start: 202110
  3. MODERNA COVID-19 VACCINE [Concomitant]
     Active Substance: ELASOMERAN
     Indication: COVID-19 immunisation
     Dosage: MODERNA
     Route: 030
     Dates: start: 20210412, end: 20210412
  4. MODERNA COVID-19 VACCINE [Concomitant]
     Active Substance: ELASOMERAN
     Dosage: MODERNA
     Route: 030
     Dates: start: 20210510, end: 20210510
  5. ALLOPURINOL [Concomitant]
     Active Substance: ALLOPURINOL
     Indication: Gout
  6. OMEPRAZOLE [Concomitant]
     Active Substance: OMEPRAZOLE
     Indication: Gastrooesophageal reflux disease
  7. VITAMIN B [Concomitant]
     Active Substance: VITAMIN B
     Indication: Product used for unknown indication
  8. VITAMIN C [Concomitant]
     Active Substance: ASCORBIC ACID
     Indication: Product used for unknown indication

REACTIONS (15)
  - Scapula fracture [Recovering/Resolving]
  - Nasal cyst [Recovering/Resolving]
  - Nasal septum disorder [Recovering/Resolving]
  - Cataract [Unknown]
  - Musculoskeletal pain [Recovering/Resolving]
  - Device use error [Unknown]
  - Nasal inflammation [Unknown]
  - Parosmia [Recovering/Resolving]
  - Malaise [Recovered/Resolved]
  - Scar [Recovering/Resolving]
  - Fall [Recovered/Resolved]
  - Cough [Recovered/Resolved]
  - Respiratory tract infection [Recovered/Resolved]
  - Arthralgia [Unknown]
  - Rhinitis [Recovering/Resolving]

NARRATIVE: CASE EVENT DATE: 20210101
